FAERS Safety Report 6033155-6 (Version None)
Quarter: 2009Q1

REPORT INFORMATION
  Report Type: 
  Country: None (occurrence: None)
  Receive Date: 20090109
  Receipt Date: 20081230
  Transmission Date: 20090719
  Serious: Yes (Life-Threatening)
  Sender: FDA-Public Use
  Company Number: GB-SANOFI-SYNTHELABO-A01200900009

PATIENT
  Age: 54 Year
  Sex: Male
  Weight: 71.4 kg

DRUGS (5)
  1. DEXAMETHASONE TAB [Concomitant]
     Route: 048
     Dates: start: 20081202, end: 20081204
  2. CYCLIZINE [Concomitant]
     Indication: MALAISE
     Route: 048
     Dates: start: 20081202, end: 20081204
  3. ERBITUX [Suspect]
     Dosage: 700 MG
     Route: 042
     Dates: start: 20081202, end: 20081202
  4. 5-FLOUROURACIL [Suspect]
     Dosage: 2800 MG
     Dates: start: 20081202, end: 20081203
  5. OXALIPLATIN [Suspect]
     Indication: COLORECTAL CANCER
     Dosage: 147 MG
     Route: 042
     Dates: start: 20081202, end: 20081202

REACTIONS (1)
  - VENTRICULAR TACHYCARDIA [None]
